FAERS Safety Report 8535593 (Version 2)
Quarter: 2012Q4

REPORT INFORMATION
  Report Type: 
  Country: US (occurrence: US)
  Receive Date: 20120430
  Receipt Date: 20121125
  Transmission Date: 20130627
  Serious: Yes (Hospitalization)
  Sender: FDA-Public Use
  Company Number: US-BAYER-2012-041529

PATIENT
  Age: 45 Year
  Sex: Female
  Weight: 70.3 kg

DRUGS (3)
  1. YAZ [Suspect]
     Indication: PREMENSTRUAL SYNDROME
     Dosage: UNK
     Dates: start: 20061116, end: 20070706
  2. FLEXERIL [Concomitant]
     Indication: BACK PAIN
     Dosage: 10 mg, UNK
     Dates: start: 20070705
  3. NAPROXEN [Concomitant]
     Indication: BACK PAIN
     Dosage: 1 tablet
     Dates: start: 20070705

REACTIONS (16)
  - Transient ischaemic attack [Recovered/Resolved]
  - Transient ischaemic attack [Recovered/Resolved]
  - Ischaemic cerebral infarction [None]
  - Injury [Recovered/Resolved]
  - Pain [None]
  - Emotional distress [None]
  - General physical health deterioration [Recovered/Resolved]
  - Anxiety [None]
  - VIIth nerve paralysis [Recovered/Resolved]
  - Dysarthria [Recovered/Resolved]
  - Hemiparesis [Recovered/Resolved]
  - Gait disturbance [Recovered/Resolved]
  - Hypoaesthesia [Recovered/Resolved]
  - Anxiety [None]
  - Clumsiness [Recovered/Resolved]
  - Muscular weakness [Recovered/Resolved]
